FAERS Safety Report 14982530 (Version 1)
Quarter: 2018Q2

REPORT INFORMATION
  Report Type: Spontaneous
  Country: US (occurrence: US)
  Receive Date: 20180517
  Receipt Date: 20180517
  Transmission Date: 20180711
  Serious: Yes (Disabling)
  Sender: FDA-Public Use
  Company Number: None

PATIENT
  Age: 45 Year
  Sex: Female
  Weight: 56.25 kg

DRUGS (2)
  1. LISINOPRIL. [Concomitant]
     Active Substance: LISINOPRIL
  2. LEVAQUIN [Suspect]
     Active Substance: LEVOFLOXACIN

REACTIONS (6)
  - Tendon pain [None]
  - Arthralgia [None]
  - Sleep disorder [None]
  - Paraesthesia [None]
  - Gait disturbance [None]
  - Myalgia [None]

NARRATIVE: CASE EVENT DATE: 20180514
